FAERS Safety Report 11505856 (Version 1)
Quarter: 2015Q3

REPORT INFORMATION
  Report Type: Spontaneous
  Country: US (occurrence: US)
  Receive Date: 20150915
  Receipt Date: 20150915
  Transmission Date: 20151125
  Serious: Yes (Hospitalization)
  Sender: FDA-Public Use
  Company Number: US-ROCHE-746619

PATIENT
  Age: 61 Year
  Sex: Female

DRUGS (2)
  1. RIBAVIRIN. [Suspect]
     Active Substance: RIBAVIRIN
     Indication: HEPATITIS C
     Dosage: DIVIDED DOSES; 200 MG X 3 (IN THE MORNING) AND 200 MG X 2 (IN THE EVENING)
     Route: 048
  2. PEGASYS [Suspect]
     Active Substance: PEGINTERFERON ALFA-2A
     Indication: HEPATITIS C
     Dosage: FORM:PFS
     Route: 058

REACTIONS (5)
  - Cough [Recovered/Resolved]
  - Burning sensation [Unknown]
  - Chest pain [Not Recovered/Not Resolved]
  - Muscle tightness [Unknown]
  - Abdominal pain upper [Unknown]

NARRATIVE: CASE EVENT DATE: 20101205
